FAERS Safety Report 10160861 (Version 2)
Quarter: 2014Q2

REPORT INFORMATION
  Report Type: Spontaneous
  Country: US (occurrence: US)
  Receive Date: 20140508
  Receipt Date: 20140522
  Transmission Date: 20141212
  Serious: Yes (Other)
  Sender: FDA-Public Use
  Company Number: US-LUNDBECK-DKLU1099795

PATIENT
  Sex: Male

DRUGS (8)
  1. SABRIL (FOR ORAL SOLUTION) [Suspect]
     Indication: INFANTILE SPASMS
     Dates: start: 20131108, end: 20140501
  2. SABRIL (FOR ORAL SOLUTION) [Suspect]
     Dates: start: 20131108, end: 20140501
  3. SABRIL (FOR ORAL SOLUTION) [Suspect]
     Dates: start: 20140502
  4. SABRIL (FOR ORAL SOLUTION) [Suspect]
     Dates: start: 20140502
  5. KEPPRA [Concomitant]
     Indication: PRODUCT USED FOR UNKNOWN INDICATION
  6. LYRICA [Concomitant]
     Indication: PRODUCT USED FOR UNKNOWN INDICATION
  7. TOPAMAX [Concomitant]
     Indication: PRODUCT USED FOR UNKNOWN INDICATION
  8. PHENOBARBITAL [Concomitant]
     Indication: PRODUCT USED FOR UNKNOWN INDICATION

REACTIONS (1)
  - Infantile spasms [Unknown]
